FAERS Safety Report 16876337 (Version 1)
Quarter: 2019Q4

REPORT INFORMATION
  Report Type: Spontaneous
  Country: AE (occurrence: AE)
  Receive Date: 20191002
  Receipt Date: 20191002
  Transmission Date: 20200122
  Serious: Yes (Other)
  Sender: FDA-Public Use
  Company Number: AE-ASTRAZENECA-2019SF36892

PATIENT
  Age: 16797 Day
  Sex: Female

DRUGS (1)
  1. LYNPARZA [Suspect]
     Active Substance: OLAPARIB
     Indication: OVARIAN CANCER
     Route: 048
     Dates: start: 20190307, end: 20190917

REACTIONS (1)
  - Liver function test decreased [Not Recovered/Not Resolved]

NARRATIVE: CASE EVENT DATE: 20190917
